FAERS Safety Report 16019688 (Version 2)
Quarter: 2019Q2

REPORT INFORMATION
  Report Type: Spontaneous
  Country: RU (occurrence: RU)
  Receive Date: 20190228
  Receipt Date: 20190409
  Transmission Date: 20190711
  Serious: Yes (Other)
  Sender: FDA-Public Use
  Company Number: PHHY2019RU043195

PATIENT
  Age: 56 Year
  Sex: Male

DRUGS (2)
  1. PACLITAXEL. [Suspect]
     Active Substance: PACLITAXEL
     Indication: OESOPHAGEAL ADENOCARCINOMA STAGE IV
     Dosage: 80 MG/M2, QD (ON DAYS 1,8,15)
     Route: 065
     Dates: start: 201611
  2. CYRAMZA [Suspect]
     Active Substance: RAMUCIRUMAB
     Indication: OESOPHAGEAL ADENOCARCINOMA STAGE IV
     Dosage: 8 MG/KG, QD (ON DAYS 1,15)
     Route: 065

REACTIONS (13)
  - Oesophageal adenocarcinoma stage IV [Unknown]
  - Tumour haemorrhage [Recovered/Resolved]
  - Asthenia [Unknown]
  - Pleurisy [Unknown]
  - Pyrexia [Unknown]
  - Anaemia [Unknown]
  - Malignant neoplasm progression [Unknown]
  - Vomiting [Unknown]
  - Faeces discoloured [Unknown]
  - Productive cough [Unknown]
  - Product use in unapproved indication [Unknown]
  - Diarrhoea [Unknown]
  - Neutropenia [Unknown]

NARRATIVE: CASE EVENT DATE: 201611
